FAERS Safety Report 9618043 (Version 2)
Quarter: 2013Q4

REPORT INFORMATION
  Report Type: Spontaneous
  Country: CA (occurrence: CA)
  Receive Date: 20131012
  Receipt Date: 20131030
  Transmission Date: 20140711
  Serious: Yes (Other)
  Sender: FDA-Public Use
  Company Number: CA-AMGEN-CANSP2013070496

PATIENT
  Age: 75 Year
  Sex: Female
  Weight: 93 kg

DRUGS (27)
  1. ARANESP [Suspect]
     Indication: ANAEMIA
     Dosage: 30 MUG, QWK
     Route: 058
     Dates: start: 20130918
  2. PANTOLOC                           /01263204/ [Concomitant]
  3. VASOTEC                            /00574902/ [Concomitant]
  4. MONOCOR [Concomitant]
  5. GLUCOPHAGE [Concomitant]
  6. PLAVIX [Concomitant]
  7. CYMBALTA [Concomitant]
  8. FERROMAX [Concomitant]
  9. ROCALTROL [Concomitant]
  10. CALCIUM WITH VITAMIN D             /00944201/ [Concomitant]
  11. LIPITOR [Concomitant]
  12. LASIX                              /00032601/ [Concomitant]
  13. NORVASC [Concomitant]
  14. HUMULIN N [Concomitant]
     Dosage: UNK
     Route: 058
  15. HUMALOG [Concomitant]
  16. ATIVAN [Concomitant]
  17. LYRICA [Concomitant]
  18. ATORVASTATIN [Concomitant]
     Dosage: 40 MG, UNK
     Route: 048
  19. ENALAPRIL [Concomitant]
     Dosage: 10 MG, UNK
     Route: 048
  20. FUROSEMIDE [Concomitant]
     Dosage: 40 MG, UNK
     Route: 048
  21. BISOPROLOL [Concomitant]
     Dosage: 10 MG, UNK
     Route: 048
  22. AMLODIPINE [Concomitant]
     Dosage: 5 MG, UNK
     Route: 048
  23. METFORMIN [Concomitant]
     Dosage: 500 MG, UNK
     Route: 048
  24. DULOXETINE [Concomitant]
     Dosage: 30 MG, UNK
     Route: 048
  25. LORAZEPAM [Concomitant]
     Dosage: 1 MG, UNK
     Route: 048
  26. OXYCODONE [Concomitant]
     Dosage: 5 MG, AS NECESSARY
     Route: 048
  27. PREGABALIN [Concomitant]
     Dosage: 50 MG, QD
     Route: 048

REACTIONS (12)
  - Drug hypersensitivity [Recovered/Resolved]
  - Tongue disorder [Recovered/Resolved]
  - Lip swelling [Recovered/Resolved]
  - Local swelling [Recovered/Resolved]
  - Nausea [Recovered/Resolved]
  - Oral pruritus [Recovered/Resolved]
  - Oral disorder [Unknown]
  - Paraesthesia oral [Recovered/Resolved]
  - Paraesthesia [Recovered/Resolved]
  - Speech disorder [Unknown]
  - Headache [Recovered/Resolved]
  - Dizziness [Recovered/Resolved]
